FAERS Safety Report 14263911 (Version 2)
Quarter: 2017Q4

REPORT INFORMATION
  Report Type: Spontaneous
  Country: IT (occurrence: IT)
  Receive Date: 20171208
  Receipt Date: 20171222
  Transmission Date: 20180321
  Serious: Yes (Hospitalization, Other)
  Sender: FDA-Public Use
  Company Number: IT-GILEAD-2017-0308074

PATIENT
  Sex: Male

DRUGS (25)
  1. SOVALDI [Suspect]
     Active Substance: SOFOSBUVIR
     Indication: CHRONIC HEPATITIS C
     Dosage: 400 MG, UNK
     Route: 065
  2. EMTRICITABINE/TENOFOVIR DF [Interacting]
     Active Substance: EMTRICITABINE
     Indication: HIV INFECTION
     Dosage: UNK
     Route: 065
  3. ATAZANAVIR SULFATE. [Interacting]
     Active Substance: ATAZANAVIR SULFATE
     Route: 065
  4. LAMIVUDINE. [Interacting]
     Active Substance: LAMIVUDINE
     Route: 065
  5. RITONAVIR. [Suspect]
     Active Substance: RITONAVIR
     Indication: CHRONIC HEPATITIS C
  6. DACLATASVIR DIHYDROCHLORIDE [Interacting]
     Active Substance: DACLATASVIR DIHYDROCHLORIDE
     Indication: CHRONIC HEPATITIS C
     Dosage: 60 MG, UNK
     Route: 065
  7. LAMIVUDINE. [Interacting]
     Active Substance: LAMIVUDINE
     Indication: CHRONIC HEPATITIS C
     Dosage: UNK
     Route: 065
  8. ATAZANAVIR SULFATE. [Interacting]
     Active Substance: ATAZANAVIR SULFATE
     Route: 065
  9. ABACAVIR. [Interacting]
     Active Substance: ABACAVIR
     Indication: CHRONIC HEPATITIS C
     Dosage: UNK
     Route: 065
  10. DACLATASVIR DIHYDROCHLORIDE [Interacting]
     Active Substance: DACLATASVIR DIHYDROCHLORIDE
     Dosage: 30 MG, UNK
     Route: 065
  11. LAMIVUDINE. [Interacting]
     Active Substance: LAMIVUDINE
     Route: 065
  12. ATAZANAVIR SULFATE. [Interacting]
     Active Substance: ATAZANAVIR SULFATE
     Indication: CHRONIC HEPATITIS C
     Dosage: UNK
     Route: 065
  13. ABACAVIR. [Interacting]
     Active Substance: ABACAVIR
     Indication: HIV INFECTION
     Dosage: UNK
     Route: 065
  14. ABACAVIR. [Interacting]
     Active Substance: ABACAVIR
     Route: 065
  15. DACLATASVIR DIHYDROCHLORIDE [Interacting]
     Active Substance: DACLATASVIR DIHYDROCHLORIDE
     Indication: HIV INFECTION
     Dosage: 30 MG, UNK
     Route: 065
  16. LAMIVUDINE. [Interacting]
     Active Substance: LAMIVUDINE
     Indication: HIV INFECTION
     Dosage: UNK
     Route: 065
  17. SOVALDI [Interacting]
     Active Substance: SOFOSBUVIR
     Indication: HIV INFECTION
     Dosage: UNK
     Route: 065
  18. RIBAVIRIN. [Interacting]
     Active Substance: RIBAVIRIN
     Indication: CHRONIC HEPATITIS C
     Dosage: 1000 MG, UNK
     Route: 065
  19. ATAZANAVIR SULFATE. [Interacting]
     Active Substance: ATAZANAVIR SULFATE
     Indication: HIV INFECTION
     Dosage: UNK
     Route: 065
  20. RITONAVIR. [Suspect]
     Active Substance: RITONAVIR
     Indication: HIV INFECTION
     Dosage: UNK
     Route: 065
  21. ABACAVIR. [Interacting]
     Active Substance: ABACAVIR
     Route: 065
  22. SOVALDI [Interacting]
     Active Substance: SOFOSBUVIR
     Dosage: 400 MG, UNK
     Route: 065
  23. SOVALDI [Interacting]
     Active Substance: SOFOSBUVIR
     Route: 065
  24. RIBAVIRIN. [Interacting]
     Active Substance: RIBAVIRIN
     Indication: HIV INFECTION
     Dosage: 600 MG, UNK
     Route: 065
  25. DACLATASVIR DIHYDROCHLORIDE [Interacting]
     Active Substance: DACLATASVIR DIHYDROCHLORIDE
     Dosage: 60 MG, UNK
     Route: 065

REACTIONS (7)
  - Hyperbilirubinaemia [Recovered/Resolved]
  - Drug interaction [Unknown]
  - Cholelithiasis [Recovered/Resolved]
  - Anaemia [Recovered/Resolved]
  - Nephrolithiasis [Recovered/Resolved]
  - Jaundice [Unknown]
  - Renal disorder [Recovered/Resolved]
